FAERS Safety Report 12587910 (Version 1)
Quarter: 2016Q3

REPORT INFORMATION
  Report Type: Spontaneous
  Country: US (occurrence: US)
  Receive Date: 20160725
  Receipt Date: 20160725
  Transmission Date: 20161109
  Serious: Yes (Other)
  Sender: FDA-Public Use
  Company Number: US-PFIZER INC-2016344178

PATIENT

DRUGS (3)
  1. BUPIVACAINE. [Concomitant]
     Active Substance: BUPIVACAINE
     Dosage: UNK
  2. CALCIUM CHLORIDE. [Suspect]
     Active Substance: CALCIUM CHLORIDE
     Indication: MEDICATION DILUTION
     Dosage: UNK
  3. SODIUM CHLORIDE. [Suspect]
     Active Substance: SODIUM CHLORIDE
     Indication: MEDICATION DILUTION

REACTIONS (3)
  - Wrong drug administered [Not Recovered/Not Resolved]
  - Brachial plexus injury [Not Recovered/Not Resolved]
  - Injection site exfoliation [Unknown]
